FAERS Safety Report 10228265 (Version 2)
Quarter: 2014Q3

REPORT INFORMATION
  Report Type: Spontaneous
  Country: US (occurrence: US)
  Receive Date: 20140610
  Receipt Date: 20140930
  Transmission Date: 20150326
  Serious: Yes (Other)
  Sender: FDA-Public Use
  Company Number: US-BAYER-2014-085266

PATIENT
  Age: 22 Year
  Sex: Female
  Weight: 86.71 kg

DRUGS (2)
  1. MIRENA [Suspect]
     Active Substance: LEVONORGESTREL
     Indication: MENORRHAGIA
  2. MIRENA [Suspect]
     Active Substance: LEVONORGESTREL
     Indication: CONTRACEPTION
     Dosage: 20 MCG/24HR, CONT
     Route: 015
     Dates: start: 20130829, end: 20140603

REACTIONS (6)
  - Device issue [None]
  - Genital haemorrhage [None]
  - Device expulsion [None]
  - Device physical property issue [None]
  - Pain [None]
  - Abdominal pain lower [None]

NARRATIVE: CASE EVENT DATE: 20130829
